FAERS Safety Report 18020399 (Version 1)
Quarter: 2020Q3

REPORT INFORMATION
  Report Type: Spontaneous
  Country: PT (occurrence: PT)
  Receive Date: 20200714
  Receipt Date: 20200714
  Transmission Date: 20201103
  Serious: Yes (Other)
  Sender: FDA-Public Use
  Company Number: PT-MYLANLABS-2020M1064128

PATIENT
  Age: 71 Year
  Sex: Male
  Weight: 65 kg

DRUGS (8)
  1. PLAQUINOL [Suspect]
     Active Substance: HYDROXYCHLOROQUINE SULFATE
     Indication: COVID-19 PNEUMONIA
     Dosage: 400MG 12/12H EM D0
     Route: 048
     Dates: start: 20200321
  2. OMEPRAZOLE. [Concomitant]
     Active Substance: OMEPRAZOLE
     Dosage: 20 MILLIGRAM, QD
     Route: 048
     Dates: start: 20200323
  3. TAMSULOSIN [Concomitant]
     Active Substance: TAMSULOSIN
     Dosage: 0.4 MILLIGRAM, QD
     Route: 048
     Dates: start: 20200321
  4. PARACETAMOL [Concomitant]
     Active Substance: ACETAMINOPHEN
     Dosage: 1000 MILLIGRAM, PRN
     Route: 042
     Dates: start: 20200321
  5. DIAZEPAM. [Concomitant]
     Active Substance: DIAZEPAM
     Dosage: 5 MILLIGRAM, PRN
     Route: 048
     Dates: start: 20200321
  6. PARACETAMOL [Concomitant]
     Active Substance: ACETAMINOPHEN
     Dosage: AS NECESSARY
     Route: 048
     Dates: start: 20200327
  7. BROMAZEPAM [Concomitant]
     Active Substance: BROMAZEPAM
     Dosage: 1.5 MILLIGRAM, QD
     Route: 048
     Dates: start: 20200321
  8. LOPINAVIR/RITONAVIR [Suspect]
     Active Substance: LOPINAVIR\RITONAVIR
     Indication: COVID-19 PNEUMONIA
     Dosage: 2 CP 12/12H
     Route: 048
     Dates: start: 20200321

REACTIONS (8)
  - Bilirubin conjugated increased [Recovered/Resolved]
  - COVID-19 treatment [Recovered/Resolved]
  - Off label use [Unknown]
  - Alanine aminotransferase increased [Recovered/Resolved]
  - Aspartate aminotransferase increased [Recovered/Resolved]
  - Gamma-glutamyltransferase increased [Recovered/Resolved]
  - Blood bilirubin increased [Recovered/Resolved]
  - Acute kidney injury [Recovered/Resolved]

NARRATIVE: CASE EVENT DATE: 20200321
